FAERS Safety Report 8563473-9 (Version None)
Quarter: 2012Q3

REPORT INFORMATION
  Report Type: 
  Country: None (occurrence: None)
  Receive Date: 20120802
  Receipt Date: 20120723
  Transmission Date: 20120928
  Serious: Yes (Disabling, Other)
  Sender: FDA-Public Use
  Company Number: US-009507513-1207USA011323

PATIENT

DRUGS (20)
  1. ZOCOR [Suspect]
     Dosage: 40 MG, UNK
     Route: 048
  2. HUMULIN R [Suspect]
     Dosage: 24 IU, TID
  3. DEPAKOTE [Suspect]
     Dosage: 500 MG, BID
     Route: 048
  4. ATIVAN [Suspect]
     Dosage: 1 MG, TID
     Route: 048
  5. ZANTAC [Suspect]
     Dosage: 300 MG, TID
  6. DILANTIN [Suspect]
     Dosage: 300 MG, BID
     Route: 048
  7. REMERON [Suspect]
     Dosage: 30 MG, UNK
     Route: 048
  8. ISOSORBIDE MONONITRATE [Suspect]
     Dosage: 30 MG, TID
  9. LOMOTIL [Suspect]
     Dosage: 2.5 (4 IN D) MG,
     Route: 048
  10. LANTUS [Suspect]
     Dosage: 80 IU, UNK
  11. FUROSEMIDE [Suspect]
     Dosage: 40 MG, BID
     Route: 048
  12. ASPIRIN [Suspect]
     Dosage: 81 MG, PRN
  13. NITROSTAT [Suspect]
     Dosage: 0.4 MG, PRN
  14. ATENOLOL [Suspect]
     Dosage: 25 MG, QD
     Route: 048
  15. TYLENOL (CAPLET) [Suspect]
     Dosage: 1 DF, QD
  16. LANTUS [Suspect]
     Dosage: 90 IU, UNK
  17. POTASSIUM CHLORIDE [Suspect]
     Dosage: 8 MEQ, QD
  18. NORVASC [Suspect]
     Dosage: UNK
     Route: 048
  19. LACTULOSE [Suspect]
     Dosage: 30 MG, PRN
  20. METHOCARBAMOL [Suspect]
     Dosage: 750 MG, PRN
     Route: 048

REACTIONS (4)
  - CHRONIC OBSTRUCTIVE PULMONARY DISEASE [None]
  - AMNESIA [None]
  - BEDRIDDEN [None]
  - EMPHYSEMA [None]
